FAERS Safety Report 5274291-1 (Version None)
Quarter: 2007Q1

REPORT INFORMATION
  Report Type: 
  Country: None (occurrence: None)
  Receive Date: 20070323
  Receipt Date: 20070313
  Transmission Date: 20070707
  Serious: Yes (Life-Threatening)
  Sender: FDA-Public Use
  Company Number: FR-JNJFOC-20061206199

PATIENT
  Age: 69 Year
  Sex: Female

DRUGS (6)
  1. CAELYX [Suspect]
     Indication: OVARIAN CANCER
     Route: 042
  2. CARBOPLATIN [Suspect]
     Indication: OVARIAN CANCER
     Route: 042
  3. ZOPHREN [Suspect]
     Indication: PREMEDICATION
     Dates: start: 20061102, end: 20061105
  4. NEULASTA [Suspect]
     Indication: NEUTROPENIA
     Route: 058
     Dates: start: 20061101, end: 20061101
  5. EMEND [Suspect]
     Indication: PREMEDICATION
     Route: 048
     Dates: start: 20061031, end: 20061102
  6. PRIMPERAN INJ [Concomitant]
     Indication: NAUSEA
     Route: 058

REACTIONS (3)
  - NAUSEA [None]
  - NEUTROPENIA [None]
  - PHARYNGEAL OEDEMA [None]
